FAERS Safety Report 12540968 (Version 1)
Quarter: 2016Q3

REPORT INFORMATION
  Report Type: Spontaneous
  Country: US (occurrence: US)
  Receive Date: 20160708
  Receipt Date: 20160708
  Transmission Date: 20161109
  Serious: Yes (Other)
  Sender: FDA-Public Use
  Company Number: US-ENDO PHARMACEUTICALS INC.-2015-004905

PATIENT
  Sex: Female

DRUGS (1)
  1. CLONAZEPAM 0.5MG [Suspect]
     Active Substance: CLONAZEPAM
     Indication: ANXIETY
     Dosage: 0.5-1MG
     Route: 048

REACTIONS (3)
  - Drug screen negative [Unknown]
  - Suicidal ideation [Unknown]
  - Anxiety [Unknown]

NARRATIVE: CASE EVENT DATE: 2015
